FAERS Safety Report 8135168-7 (Version None)
Quarter: 2012Q1

REPORT INFORMATION
  Report Type: 
  Country: None (occurrence: None)
  Receive Date: 20120214
  Receipt Date: 20120211
  Transmission Date: 20120608
  Serious: No
  Sender: FDA-Public Use
  Company Number: US-PFIZER INC-2012037336

PATIENT
  Sex: Female
  Weight: 77.098 kg

DRUGS (3)
  1. CODEINE SULFATE [Suspect]
     Dosage: UNK
  2. PENICILLIN G POTASSIUM [Suspect]
     Dosage: UNK
  3. NORVASC [Concomitant]
     Indication: HYPERTENSION
     Dosage: 3 MG, 1X/DAY
     Route: 048

REACTIONS (1)
  - HYPERSENSITIVITY [None]
